FAERS Safety Report 5570088-3 (Version None)
Quarter: 2007Q4

REPORT INFORMATION
  Report Type: 
  Country: None (occurrence: None)
  Receive Date: 20071218
  Receipt Date: 20071128
  Transmission Date: 20080405
  Serious: Yes (Other)
  Sender: FDA-Public Use
  Company Number: 056-21880-07111625

PATIENT
  Sex: Male

DRUGS (1)
  1. REVILIMID                 (LENALIDOMIDE) [Suspect]
     Indication: DRUG USE FOR UNKNOWN INDICATION
     Dosage: 25 MG, DAILY, ORAL
     Route: 048

REACTIONS (1)
  - PERICARDITIS [None]
